FAERS Safety Report 7795967-8 (Version None)
Quarter: 2011Q4

REPORT INFORMATION
  Report Type: 
  Country: None (occurrence: None)
  Receive Date: 20111004
  Receipt Date: 20110923
  Transmission Date: 20120403
  Serious: Yes (Hospitalization, Other)
  Sender: FDA-Public Use
  Company Number: US-NOVOPROD-333918

PATIENT
  Sex: Female

DRUGS (15)
  1. ASPIRIN [Concomitant]
     Indication: PROPHYLAXIS
  2. LISINOPRIL [Concomitant]
     Indication: HYPERTENSION
  3. LISINOPRIL [Concomitant]
     Indication: TYPE 2 DIABETES MELLITUS
  4. FISH OIL [Concomitant]
     Indication: BLOOD CHOLESTEROL
  5. FLAXSEED OIL [Concomitant]
     Indication: BLOOD CHOLESTEROL
  6. CRANBERRY                          /01512301/ [Concomitant]
     Indication: URINARY TRACT INFECTION
  7. ALLOPURINOL [Concomitant]
     Indication: GOUT
  8. VICTOZA [Suspect]
     Dosage: 1.2 MG, QD
     Route: 058
     Dates: start: 20101016, end: 20110110
  9. VICTOZA [Suspect]
     Indication: TYPE 2 DIABETES MELLITUS
     Dosage: 1.2 MG, QD
     Route: 058
     Dates: start: 20100701
  10. GLUCOSAMINE CHONDROITIN [Concomitant]
     Indication: OSTEOARTHRITIS
  11. LEXAPRO [Concomitant]
     Indication: DEPRESSION
  12. COLCHICINE [Concomitant]
     Indication: GOUT
  13. VITAMIN D [Concomitant]
     Indication: SUPPLEMENTATION THERAPY
  14. VICTOZA [Suspect]
     Dosage: 1.8 MG, QD
     Route: 058
     Dates: start: 20110801
  15. METFORMIN HCL [Concomitant]
     Indication: TYPE 2 DIABETES MELLITUS

REACTIONS (1)
  - THYROID CANCER [None]
